FAERS Safety Report 23987120 (Version 1)
Quarter: 2024Q2

REPORT INFORMATION
  Report Type: Spontaneous
  Country: US (occurrence: None)
  Receive Date: 20240618
  Receipt Date: 20240618
  Transmission Date: 20240716
  Serious: Yes (Other)
  Sender: FDA-Public Use
  Company Number: None

PATIENT
  Age: 46 Year
  Sex: Female
  Weight: 85.5 kg

DRUGS (1)
  1. HERBALS\MUSHROOMS UNSPECIFIED [Suspect]
     Active Substance: HERBALS\MUSHROOMS UNSPECIFIED
     Indication: Sleep disorder
     Dosage: OTHER QUANTITY : 2 CONES?OTHER FREQUENCY : ONCE;
     Route: 048

REACTIONS (9)
  - Nausea [None]
  - Vertigo [None]
  - Vomiting [None]
  - Diarrhoea [None]
  - Hyperhidrosis [None]
  - Chills [None]
  - Pyrexia [None]
  - Tremor [None]
  - Hallucination [None]

NARRATIVE: CASE EVENT DATE: 20240617
